FAERS Safety Report 6983994-X (Version None)
Quarter: 2010Q3

REPORT INFORMATION
  Report Type: 
  Country: None (occurrence: None)
  Receive Date: 20100915
  Receipt Date: 20090515
  Transmission Date: 20110219
  Serious: No
  Sender: FDA-Public Use
  Company Number: US-WYE-H09382609

PATIENT
  Age: 38 Year
  Sex: Female
  Weight: 70.37 kg

DRUGS (3)
  1. PRISTIQ [Suspect]
     Indication: DEPRESSION
     Route: 048
     Dates: start: 20090514
  2. THYROID [Concomitant]
  3. LISINOPRIL [Concomitant]

REACTIONS (2)
  - ENERGY INCREASED [None]
  - FEELING JITTERY [None]
